FAERS Safety Report 14752844 (Version 1)
Quarter: 2018Q2

REPORT INFORMATION
  Report Type: Spontaneous
  Country: US (occurrence: US)
  Receive Date: 20180412
  Receipt Date: 20180412
  Transmission Date: 20180711
  Serious: No
  Sender: FDA-Public Use
  Company Number: US-MYLANLABS-2018M1018100

PATIENT
  Sex: Female

DRUGS (3)
  1. SUGAR BEAR HAIR VITAMINS [Concomitant]
     Indication: PRODUCT USED FOR UNKNOWN INDICATION
     Dosage: UNK
  2. ESTRADIOL TRANSDERMAL SYSTEM [Suspect]
     Active Substance: ESTRADIOL
     Indication: TURNER^S SYNDROME
     Route: 062
     Dates: end: 20180314
  3. CALCITROL                          /00508501/ [Concomitant]
     Active Substance: CALCIUM CARBONATE\ERGOCALCIFEROL\RETINOL
     Indication: PRODUCT USED FOR UNKNOWN INDICATION
     Dosage: UNK

REACTIONS (5)
  - Application site pruritus [Recovering/Resolving]
  - Application site rash [Recovering/Resolving]
  - Application site erythema [Recovering/Resolving]
  - Application site discolouration [Recovering/Resolving]
  - Application site mass [Recovering/Resolving]
